FAERS Safety Report 13740229 (Version 1)
Quarter: 2017Q3

REPORT INFORMATION
  Report Type: Spontaneous
  Country: US (occurrence: US)
  Receive Date: 20170711
  Receipt Date: 20170711
  Transmission Date: 20171127
  Serious: No
  Sender: FDA-Public Use
  Company Number: US-STRIDES ARCOLAB LIMITED-2017SP006324

PATIENT

DRUGS (2)
  1. IMIQUIMOD. [Suspect]
     Active Substance: IMIQUIMOD
     Indication: BREAST CANCER METASTATIC
     Dosage: UNK
     Route: 061
  2. PACLITAXEL. [Suspect]
     Active Substance: PACLITAXEL
     Indication: BREAST CANCER METASTATIC
     Dosage: 100 MG/M2, UNKNOWN
     Route: 042

REACTIONS (4)
  - Ocular hyperaemia [Unknown]
  - Vision blurred [Unknown]
  - Eye swelling [Unknown]
  - Scleral oedema [Unknown]
